FAERS Safety Report 16980099 (Version 1)
Quarter: 2019Q4

REPORT INFORMATION
  Report Type: Other
  Country: US (occurrence: US)
  Receive Date: 20191031
  Receipt Date: 20191031
  Transmission Date: 20200122
  Serious: Yes (Life-Threatening)
  Sender: FDA-Public Use
  Company Number: CR-2019-018

PATIENT
  Age: 47 Year
  Sex: Female
  Weight: 80.46 kg

DRUGS (3)
  1. TESTOSTERONE 50 MG PELLET [Suspect]
     Active Substance: TESTOSTERONE
     Route: 058
     Dates: start: 20151123
  2. TESTOSTERONE 87.5 MG PELLET US COMPOUNDING PHARMACY [Suspect]
     Active Substance: TESTOSTERONE
     Route: 058
     Dates: start: 20151123
  3. TESTOSTERONE 25 MG PEL [Suspect]
     Active Substance: TESTOSTERONE
     Route: 058
     Dates: start: 20151123

REACTIONS (1)
  - Breast cancer female [Unknown]

NARRATIVE: CASE EVENT DATE: 20190101
